FAERS Safety Report 9644686 (Version 1)
Quarter: 2013Q4

REPORT INFORMATION
  Report Type: Spontaneous
  Country: CH (occurrence: CH)
  Receive Date: 20131025
  Receipt Date: 20131025
  Transmission Date: 20140711
  Serious: Yes (Other)
  Sender: FDA-Public Use
  Company Number: CH-ASTRAZENECA-2013SE76792

PATIENT
  Sex: Female

DRUGS (2)
  1. ARIMIDEX [Suspect]
     Route: 048
  2. VENORUTON FORTE [Concomitant]

REACTIONS (8)
  - Venous thrombosis [Unknown]
  - Muscle rupture [Unknown]
  - Weight increased [Unknown]
  - Fatigue [Unknown]
  - Joint stiffness [Unknown]
  - Myalgia [Unknown]
  - Diarrhoea [Unknown]
  - Rash [Unknown]
